FAERS Safety Report 6594616-4 (Version None)
Quarter: 2010Q1

REPORT INFORMATION
  Report Type: 
  Country: None (occurrence: None)
  Receive Date: 20100222
  Receipt Date: 20090401
  Transmission Date: 20100710
  Serious: No
  Sender: FDA-Public Use
  Company Number: US-BRISTOL-MYERS SQUIBB COMPANY-14572176

PATIENT
  Age: 71 Year
  Sex: Female

DRUGS (7)
  1. CARBOPLATIN [Suspect]
     Indication: CHEMOTHERAPY
  2. PACLITAXEL [Suspect]
     Indication: CHEMOTHERAPY
  3. BONIVA [Suspect]
     Indication: OSTEOPOROSIS
     Dates: start: 20080921
  4. DIOVAN [Concomitant]
  5. SYNTHROID [Concomitant]
  6. CALCIUM [Concomitant]
  7. MULTI-VITAMIN [Concomitant]

REACTIONS (1)
  - DYSPEPSIA [None]
